FAERS Safety Report 17734072 (Version 2)
Quarter: 2020Q2

REPORT INFORMATION
  Report Type: Spontaneous
  Country: US (occurrence: US)
  Receive Date: 20200501
  Receipt Date: 20200519
  Transmission Date: 20200714
  Serious: No
  Sender: FDA-Public Use
  Company Number: US-PFIZER INC-2019550968

PATIENT
  Age: 59 Year
  Sex: Female
  Weight: 83.46 kg

DRUGS (1)
  1. LYRICA [Suspect]
     Active Substance: PREGABALIN
     Indication: FIBROMYALGIA
     Dosage: 1 DF, DAILY(1 CAPSULE A DAY/PRESCRIBED 1 CAPSULE TWICE A DAY BY MOUTH, UNSURE OF ACTUAL DOSE)
     Route: 048

REACTIONS (3)
  - Mental status changes [Unknown]
  - Intentional product use issue [Unknown]
  - Pain [Unknown]
